FAERS Safety Report 13599517 (Version 1)
Quarter: 2017Q2

REPORT INFORMATION
  Report Type: Spontaneous
  Country: DK (occurrence: DK)
  Receive Date: 20170531
  Receipt Date: 20170531
  Transmission Date: 20170830
  Serious: Yes (Hospitalization)
  Sender: FDA-Public Use
  Company Number: PHHY2017DK074135

PATIENT
  Age: 25 Year
  Sex: Female

DRUGS (1)
  1. PANCILLIN [Suspect]
     Active Substance: PENICILLIN
     Indication: TONSILLITIS
     Dosage: 660 MG, TID : 1 MILL. IE
     Route: 048
     Dates: start: 20170514, end: 20170515

REACTIONS (6)
  - Lip swelling [Recovering/Resolving]
  - Dyspnoea [Recovering/Resolving]
  - Drug hypersensitivity [Recovering/Resolving]
  - Rash erythematous [Recovering/Resolving]
  - Pruritus [Recovering/Resolving]
  - Eye swelling [Recovering/Resolving]

NARRATIVE: CASE EVENT DATE: 20170515
